FAERS Safety Report 9468925 (Version 1)
Quarter: 2013Q3

REPORT INFORMATION
  Report Type: Spontaneous
  Country: GB (occurrence: GB)
  Receive Date: 20130821
  Receipt Date: 20130821
  Transmission Date: 20140515
  Serious: Yes (Other)
  Sender: FDA-Public Use
  Company Number: GB-MYLANLABS-2013S1017766

PATIENT
  Age: 71 Year
  Sex: Male
  Weight: 99.6 kg

DRUGS (4)
  1. ATORVASTATIN [Suspect]
     Indication: PROPHYLAXIS
     Dates: start: 20121004, end: 20121129
  2. AMLODIPINE [Concomitant]
     Indication: HYPERTENSION
     Dates: start: 20121004, end: 20121101
  3. ASPIRIN [Concomitant]
     Indication: PRODUCT USED FOR UNKNOWN INDICATION
     Dates: start: 20121004, end: 20121101
  4. SIMVASTATIN [Concomitant]
     Indication: PRODUCT USED FOR UNKNOWN INDICATION
     Dates: start: 20121023

REACTIONS (3)
  - Malaise [Recovered/Resolved]
  - Urinary incontinence [Recovered/Resolved]
  - Myalgia [Recovered/Resolved]
